FAERS Safety Report 10715802 (Version 1)
Quarter: 2015Q1

REPORT INFORMATION
  Report Type: Report from Study
  Country: US (occurrence: None)
  Receive Date: 20150109
  Receipt Date: 20150109
  Transmission Date: 20150721
  Serious: Yes (Death, Hospitalization)
  Sender: FDA-Public Use
  Company Number: 2014PROUSA03756

PATIENT
  Age: 66 Year
  Sex: Male
  Weight: 136.1 kg

DRUGS (9)
  1. BICALUTAMIDE (BICALUTAMIDE) 80 MG [Concomitant]
     Active Substance: BICALUTAMIDE
  2. CITRACAL + D (CALCIUM CITRATE, ERGOCALCIFEROL) [Concomitant]
  3. NAPROXEN SODIUM (NAPROXEN SODIUM) UNSPECIFIED [Concomitant]
     Active Substance: NAPROXEN SODIUM
  4. DOCETAXEL (DOCETAXEL) [Concomitant]
     Active Substance: DOCETAXEL
  5. XGEVA [Concomitant]
     Active Substance: DENOSUMAB
  6. PSEUDOEPHEDRIN (PSEUDOEPHEDRINE) [Concomitant]
  7. PROVENGE [Suspect]
     Active Substance: SIPULEUCEL-T
     Indication: PROSTATE CANCER METASTATIC
     Dosage: 250 ML, SINGLE, INTRAVENOUS
     Route: 042
     Dates: start: 20130221, end: 20130221
  8. ELIGARD (LEUPRORELIN ACETATE) [Concomitant]
  9. ASPIRIN (ACETYLSALICYLIC ACID) [Concomitant]
     Active Substance: ASPIRIN

REACTIONS (1)
  - Cerebral haemorrhage [None]

NARRATIVE: CASE EVENT DATE: 20140225
